FAERS Safety Report 9745800 (Version 1)
Quarter: 2013Q4

REPORT INFORMATION
  Report Type: Spontaneous
  Country: US (occurrence: US)
  Receive Date: 20131211
  Receipt Date: 20131211
  Transmission Date: 20140711
  Serious: Yes (Other)
  Sender: FDA-Public Use
  Company Number: US-009507513-1312USA002205

PATIENT
  Sex: 0

DRUGS (1)
  1. TEMODAR [Suspect]
     Route: 048

REACTIONS (3)
  - Surgery [Unknown]
  - Gastrointestinal tube insertion [Unknown]
  - Adverse event [Unknown]
